FAERS Safety Report 12951190 (Version 1)
Quarter: 2016Q4

REPORT INFORMATION
  Report Type: Spontaneous
  Country: US (occurrence: US)
  Receive Date: 20161117
  Receipt Date: 20161117
  Transmission Date: 20170207
  Serious: No
  Sender: FDA-Public Use
  Company Number: ALCN2016US007775

PATIENT
  Sex: Male

DRUGS (2)
  1. GENTAMYCIN [Suspect]
     Active Substance: GENTAMICIN
     Indication: PRODUCT USED FOR UNKNOWN INDICATION
     Dosage: 4 MG, UNK
     Route: 065
  2. BSS [Suspect]
     Active Substance: CALCIUM CHLORIDE\MAGNESIUM CHLORIDE\POTASSIUM CHLORIDE\SODIUM ACETATE\SODIUM CHLORIDE\SODIUM CITRATE
     Indication: PRODUCT USED FOR UNKNOWN INDICATION
     Dosage: UNK MG, UNK
     Route: 065

REACTIONS (1)
  - Myopia [Recovered/Resolved]
